FAERS Safety Report 6220249-5 (Version None)
Quarter: 2009Q2

REPORT INFORMATION
  Report Type: 
  Country: None (occurrence: None)
  Receive Date: 20090605
  Receipt Date: 20090521
  Transmission Date: 20091009
  Serious: Yes (Hospitalization)
  Sender: FDA-Public Use
  Company Number: GXKR2009IT06093

PATIENT
  Age: 78 Year
  Sex: Female

DRUGS (3)
  1. DIAZEPAM [Suspect]
     Indication: DEPRESSION
     Dosage: UP TO 20 MG/DAY, UNKNOWN
  2. VENLAFAXINE HCL [Suspect]
     Indication: DEPRESSION
     Dosage: UP TO 300 MG/DAY, UNKNOWN
  3. TRAZODONE HCL [Suspect]
     Indication: DEPRESSION
     Dosage: UP TO 600 MG/DAY, UNKNOWN

REACTIONS (4)
  - AGGRESSION [None]
  - DRUG ABUSE [None]
  - DRUG TOXICITY [None]
  - MARCHIAFAVA-BIGNAMI DISEASE [None]
